FAERS Safety Report 9549682 (Version 3)
Quarter: 2013Q4

REPORT INFORMATION
  Report Type: Spontaneous
  Country: US (occurrence: US)
  Receive Date: 20130924
  Receipt Date: 20131025
  Transmission Date: 20140711
  Serious: Yes (Death, Hospitalization)
  Sender: FDA-Public Use
  Company Number: US-B.I. PHARMACEUTICALS,INC./RIDGEFIELD-2013-BI-29506BP

PATIENT
  Age: 81 Year
  Sex: Female
  Weight: 52.62 kg

DRUGS (16)
  1. PRADAXA [Suspect]
     Indication: ATRIAL FIBRILLATION
     Dosage: 150 MG
     Route: 048
     Dates: start: 20120330, end: 20130916
  2. LIPITOR [Concomitant]
     Dosage: 10 MG
     Route: 048
  3. AMOXICILLIN [Concomitant]
  4. VITAMIN D [Concomitant]
     Dosage: 1000 U
     Route: 048
  5. DIGOXIN [Concomitant]
     Dosage: 0.25 MG
     Route: 048
  6. CARDIZEM [Concomitant]
     Dosage: 240 MG
     Route: 048
  7. PEPCID [Concomitant]
     Route: 048
  8. KEPPRA [Concomitant]
     Dosage: 2000 MG
     Route: 048
  9. COZAAR [Concomitant]
     Dosage: 50 MG
     Route: 048
  10. ONDASETRAN [Concomitant]
     Dosage: 12 MG
     Route: 048
  11. MESTINON [Concomitant]
     Dosage: 120 MG
     Route: 048
  12. VITAMIN A [Concomitant]
     Dosage: 25000 U
     Route: 048
  13. ZOLPIDEM [Concomitant]
     Dosage: 5 MG
     Route: 048
  14. NEXIUM [Concomitant]
     Dosage: 40 MG
     Route: 048
  15. OXYBUTYNIN [Concomitant]
     Dosage: 30 MG
     Route: 048
  16. TOVIAZ [Concomitant]
     Dosage: 8 MG
     Route: 048

REACTIONS (4)
  - Gastrointestinal haemorrhage [Fatal]
  - Faecaloma [Unknown]
  - Acute respiratory distress syndrome [Unknown]
  - Hypovolaemic shock [Unknown]
